FAERS Safety Report 9904486 (Version 2)
Quarter: 2014Q2

REPORT INFORMATION
  Report Type: Report from Study
  Country: CA (occurrence: CA)
  Receive Date: 20140218
  Receipt Date: 20140417
  Transmission Date: 20141212
  Serious: Yes (Other)
  Sender: FDA-Public Use
  Company Number: CA-JNJFOC-20140208898

PATIENT
  Age: 38 Year
  Sex: Male
  Weight: 80 kg

DRUGS (3)
  1. REMICADE [Suspect]
     Indication: PSORIASIS
     Dosage: 25TH INFUSION
     Route: 042
     Dates: start: 20140410
  2. REMICADE [Suspect]
     Indication: PSORIASIS
     Route: 042
     Dates: start: 20100621
  3. NORVASC [Concomitant]
     Route: 048

REACTIONS (2)
  - Haematuria [Recovering/Resolving]
  - Proteinuria [Recovering/Resolving]
